FAERS Safety Report 10710886 (Version 4)
Quarter: 2015Q2

REPORT INFORMATION
  Report Type: Spontaneous
  Country: US (occurrence: US)
  Receive Date: 20150114
  Receipt Date: 20150423
  Transmission Date: 20150821
  Serious: Yes (Disabling)
  Sender: FDA-Public Use
  Company Number: US-009507513-1204USA03760

PATIENT
  Sex: Male
  Weight: 80.73 kg

DRUGS (6)
  1. PROSCAR [Suspect]
     Active Substance: FINASTERIDE
     Indication: ANDROGENETIC ALOPECIA
     Dosage: 5MG SPLT X4/1.25MG DAILY
     Route: 048
  2. ZOLOFT [Suspect]
     Active Substance: SERTRALINE HYDROCHLORIDE
  3. PROPECIA [Suspect]
     Active Substance: FINASTERIDE
     Indication: ANDROGENETIC ALOPECIA
     Dosage: 1 MG, UNK
     Route: 048
     Dates: start: 20040625
  4. FINASTERIDE. [Suspect]
     Active Substance: FINASTERIDE
     Indication: ANDROGENETIC ALOPECIA
     Dosage: 5MG SPLT X4/1.25MG DAILY
     Route: 048
     Dates: start: 200409, end: 2011
  5. LORAZEPAM. [Suspect]
     Active Substance: LORAZEPAM
  6. KLONOPIN [Suspect]
     Active Substance: CLONAZEPAM

REACTIONS (25)
  - Cutaneous lupus erythematosus [Recovering/Resolving]
  - Fatigue [Unknown]
  - Wrong technique in drug usage process [Unknown]
  - Onychomycosis [Unknown]
  - Nasal congestion [Unknown]
  - Anxiety [Not Recovered/Not Resolved]
  - Erectile dysfunction [Unknown]
  - Libido decreased [Unknown]
  - Panic attack [Unknown]
  - Memory impairment [Unknown]
  - Palpitations [Unknown]
  - Sexual dysfunction [Unknown]
  - Sinus operation [Unknown]
  - Sedation [Unknown]
  - Stress at work [Unknown]
  - Ejaculation disorder [Unknown]
  - Ejaculation failure [Unknown]
  - Depression [Not Recovered/Not Resolved]
  - Alopecia areata [Recovering/Resolving]
  - Drug administration error [Unknown]
  - Drug hypersensitivity [Unknown]
  - Cognitive disorder [Unknown]
  - Disturbance in attention [Unknown]
  - Wrong technique in drug usage process [Unknown]
  - Anxiety disorder [Unknown]

NARRATIVE: CASE EVENT DATE: 200409
